FAERS Safety Report 4537564-3 (Version None)
Quarter: 2004Q4

REPORT INFORMATION
  Report Type: 
  Country: None (occurrence: None)
  Receive Date: 20041223
  Receipt Date: 20041217
  Transmission Date: 20050328
  Serious: Yes (Other)
  Sender: FDA-Public Use
  Company Number: DE-MERCK-0412DEU00169

PATIENT
  Sex: Female

DRUGS (1)
  1. VYTORIN [Suspect]
     Indication: HYPERCHOLESTEROLAEMIA
     Route: 048

REACTIONS (3)
  - MUSCLE CRAMP [None]
  - MYALGIA [None]
  - VAGINAL HAEMORRHAGE [None]
